FAERS Safety Report 10012603 (Version 3)
Quarter: 2014Q2

REPORT INFORMATION
  Report Type: Spontaneous
  Country: JP (occurrence: JP)
  Receive Date: 20140314
  Receipt Date: 20140415
  Transmission Date: 20141212
  Serious: Yes (Death)
  Sender: FDA-Public Use
  Company Number: JP-JNJFOC-20140305124

PATIENT
  Age: 83 Year
  Sex: Male

DRUGS (16)
  1. XARELTO [Suspect]
     Indication: CEREBROVASCULAR ACCIDENT PROPHYLAXIS
     Route: 048
     Dates: start: 20131125, end: 20140305
  2. XARELTO [Suspect]
     Indication: CEREBROVASCULAR ACCIDENT PROPHYLAXIS
     Route: 048
     Dates: start: 20131118, end: 20131124
  3. XARELTO [Suspect]
     Indication: ATRIAL FIBRILLATION
     Route: 048
     Dates: start: 20131125, end: 20140305
  4. XARELTO [Suspect]
     Indication: ATRIAL FIBRILLATION
     Route: 048
     Dates: start: 20131118, end: 20131124
  5. RABEPRAZOLE SODIUM [Concomitant]
     Indication: GASTRIC ULCER
     Route: 048
     Dates: start: 2012
  6. DIGOSIN [Concomitant]
     Indication: ATRIAL FIBRILLATION
     Route: 048
     Dates: start: 20140108
  7. URIEF [Concomitant]
     Indication: BENIGN PROSTATIC HYPERPLASIA
     Route: 048
     Dates: start: 2012
  8. MOSAPRIDE CITRATE [Concomitant]
     Indication: GASTRITIS
     Route: 048
     Dates: start: 2012
  9. SENNA ALEXANDRINA LEAF [Concomitant]
     Indication: CONSTIPATION
     Route: 048
     Dates: start: 2012
  10. SENNOSIDE A+B CALCIUM [Concomitant]
     Indication: CONSTIPATION
     Route: 048
     Dates: start: 2012
  11. MAINTATE [Concomitant]
     Indication: HYPERTENSION
     Route: 048
     Dates: start: 2012
  12. RELPAX [Concomitant]
     Indication: MIGRAINE
     Route: 048
     Dates: start: 2012
  13. RESLIN [Concomitant]
     Indication: DEPRESSION
     Route: 048
     Dates: start: 2012
  14. LENDORMIN [Concomitant]
     Indication: INSOMNIA
     Route: 048
     Dates: start: 20140306
  15. VASOLAN [Concomitant]
     Indication: ATRIAL FIBRILLATION
     Route: 065
     Dates: start: 20131118, end: 20140107
  16. SUNRYTHM [Concomitant]
     Indication: ATRIAL FIBRILLATION
     Route: 065
     Dates: start: 20131202, end: 20140107

REACTIONS (1)
  - Interstitial lung disease [Fatal]
